FAERS Safety Report 3248133 (Version 4)
Quarter: 2013Q1

REPORT INFORMATION
  Report Type: Spontaneous
  Country: US (occurrence: US)
  Receive Date: 19980921
  Receipt Date: 20130308
  Transmission Date: 20140127
  Serious: Yes (Hospitalization)
  Sender: FDA-Public Use
  Company Number: 117732

PATIENT
  Age: 28 Year
  Sex: Female
  Weight: 54 kg

DRUGS (7)
  1. AVONEX [Suspect]
     Indication: MULTIPLE SCLEROSIS
     Route: 030
     Dates: start: 199609, end: 2003
  2. AVONEX [Suspect]
     Indication: MULTIPLE SCLEROSIS
     Route: 030
     Dates: start: 2003
  3. CLINORIL [Concomitant]
     Indication: RHEUMATOID ARTHRITIS
     Dates: start: 1993
  4. PAXIL [Concomitant]
     Indication: OBSESSIVE-COMPULSIVE DISORDER
  5. PAXIL [Concomitant]
     Indication: DEPRESSION
  6. AMANTADINE [Concomitant]
     Route: 048
  7. ANAFRANIL [Concomitant]
     Indication: OBSESSIVE-COMPULSIVE DISORDER

REACTIONS (3)
  - Grand mal convulsion [Recovered/Resolved]
  - Influenza like illness [Recovered/Resolved]
  - Multiple sclerosis [Unknown]
